FAERS Safety Report 13463057 (Version 3)
Quarter: 2019Q3

REPORT INFORMATION
  Report Type: Spontaneous
  Country: US (occurrence: US)
  Receive Date: 20170420
  Receipt Date: 20190821
  Transmission Date: 20191004
  Serious: Yes (Other)
  Sender: FDA-Public Use
  Company Number: US-TEVA-760135ACC

PATIENT
  Age: 27 Year
  Sex: Female
  Weight: 82.63 kg

DRUGS (2)
  1. PARAGARD T 380A [Suspect]
     Active Substance: COPPER
     Indication: CONTRACEPTION
     Dates: start: 20151123, end: 201605
  2. PARAGARD T 380A [Suspect]
     Active Substance: COPPER
     Dates: start: 20170426

REACTIONS (5)
  - Maternal exposure during pregnancy [Unknown]
  - Pregnancy on contraceptive [Unknown]
  - Exposure via breast milk [Unknown]
  - Device expulsion [Recovered/Resolved]
  - Normal newborn [Unknown]

NARRATIVE: CASE EVENT DATE: 201605
